FAERS Safety Report 7995689-4 (Version None)
Quarter: 2011Q4

REPORT INFORMATION
  Report Type: 
  Country: None (occurrence: None)
  Receive Date: 20111220
  Receipt Date: 20111215
  Transmission Date: 20120403
  Serious: Yes (Hospitalization, Disabling, Other)
  Sender: FDA-Public Use
  Company Number: BR-ABBOTT-11P-020-0884045-00

PATIENT
  Sex: Female
  Weight: 67 kg

DRUGS (4)
  1. CALPAMAX [Concomitant]
     Indication: ANXIOLYTIC THERAPY
     Route: 048
  2. NEVILIC [Concomitant]
     Indication: BLOOD TEST ABNORMAL
     Route: 048
  3. CAPTOPRIL [Concomitant]
     Indication: HYPERTENSION
     Route: 048
  4. HUMIRA [Suspect]
     Indication: RHEUMATOID ARTHRITIS
     Route: 058

REACTIONS (3)
  - CEREBROVASCULAR ACCIDENT [None]
  - MOVEMENT DISORDER [None]
  - SPEECH DISORDER [None]
